FAERS Safety Report 9699627 (Version 1)
Quarter: 2013Q4

REPORT INFORMATION
  Report Type: Spontaneous
  Country: US (occurrence: US)
  Receive Date: 20131120
  Receipt Date: 20131120
  Transmission Date: 20140711
  Serious: No
  Sender: FDA-Public Use
  Company Number: US-TEVA-372093USA

PATIENT
  Age: 33 Year
  Sex: Female
  Weight: 65.83 kg

DRUGS (1)
  1. PARAGARD 380A [Suspect]
     Indication: CONTRACEPTION
     Dates: start: 20071025, end: 20121119

REACTIONS (3)
  - Menstruation irregular [Unknown]
  - Vaginal haemorrhage [Unknown]
  - Medical device complication [Not Recovered/Not Resolved]
